FAERS Safety Report 10064614 (Version 3)
Quarter: 2014Q2

REPORT INFORMATION
  Report Type: Spontaneous
  Country: US (occurrence: US)
  Receive Date: 20140408
  Receipt Date: 20140627
  Transmission Date: 20141212
  Serious: Yes (Other)
  Sender: FDA-Public Use
  Company Number: US-BAYER-2014-051791

PATIENT
  Age: 20 Year
  Sex: Female
  Weight: 49.43 kg

DRUGS (1)
  1. MIRENA [Suspect]
     Indication: CONTRACEPTION
     Dosage: 20 MCG/24HR, CONT
     Route: 015
     Dates: start: 20140314, end: 20140314

REACTIONS (2)
  - Embedded device [Recovered/Resolved]
  - Complication of device insertion [Recovered/Resolved]
